FAERS Safety Report 20226909 (Version 1)
Quarter: 2021Q4

REPORT INFORMATION
  Report Type: Spontaneous
  Country: US (occurrence: US)
  Receive Date: 20211224
  Receipt Date: 20211224
  Transmission Date: 20220303
  Serious: No
  Sender: FDA-Public Use
  Company Number: US-CELGENE-USA-20211205650

PATIENT
  Sex: Female
  Weight: 81.720 kg

DRUGS (2)
  1. POMALYST [Suspect]
     Active Substance: POMALIDOMIDE
     Indication: Plasma cell myeloma
     Dosage: 2 MILLIGRAM
     Route: 048
     Dates: start: 20191115
  2. POMALYST [Suspect]
     Active Substance: POMALIDOMIDE
     Dosage: 1 MG
     Route: 048
     Dates: start: 202104

REACTIONS (6)
  - Malaise [Unknown]
  - Abdominal discomfort [Unknown]
  - Asthenia [Unknown]
  - Fatigue [Unknown]
  - Constipation [Unknown]
  - Diarrhoea [Unknown]
